FAERS Safety Report 9899538 (Version 1)
Quarter: 2014Q1

REPORT INFORMATION
  Report Type: Report from Study
  Country: CA (occurrence: CA)
  Receive Date: 20140214
  Receipt Date: 20140214
  Transmission Date: 20141002
  Serious: Yes (Death, Hospitalization)
  Sender: FDA-Public Use
  Company Number: CA-MYLANLABS-2014S1002808

PATIENT
  Age: 4 Month
  Sex: Female

DRUGS (7)
  1. CARBOPLATIN [Suspect]
     Indication: ATYPICAL TERATOID/RHABDOID TUMOUR OF CNS
     Dosage: 17 MG/KG/DAY
     Route: 065
  2. THIOTEPA [Suspect]
     Indication: ATYPICAL TERATOID/RHABDOID TUMOUR OF CNS
     Dosage: 10 MG/KG/DAY
     Route: 065
  3. METHOTREXATE [Concomitant]
     Indication: ATYPICAL TERATOID/RHABDOID TUMOUR OF CNS
     Route: 042
  4. VINCRISTINE [Concomitant]
     Indication: ATYPICAL TERATOID/RHABDOID TUMOUR OF CNS
     Route: 042
  5. ETOPOSIDE [Concomitant]
     Indication: ATYPICAL TERATOID/RHABDOID TUMOUR OF CNS
     Route: 042
  6. CYCLOPHOSPHAMIDE [Concomitant]
     Indication: ATYPICAL TERATOID/RHABDOID TUMOUR OF CNS
     Route: 042
  7. CISPLATIN [Concomitant]
     Indication: ATYPICAL TERATOID/RHABDOID TUMOUR OF CNS
     Route: 042

REACTIONS (2)
  - Pulmonary arterial hypertension [Fatal]
  - Pulmonary vascular disorder [Recovering/Resolving]
